FAERS Safety Report 9674717 (Version 2)
Quarter: 2013Q4

REPORT INFORMATION
  Report Type: Spontaneous
  Country: IN (occurrence: IN)
  Receive Date: 20131107
  Receipt Date: 20131118
  Transmission Date: 20140711
  Serious: Yes (Other)
  Sender: FDA-Public Use
  Company Number: IN-PFIZER INC-2013316769

PATIENT
  Age: 35 Year
  Sex: Male

DRUGS (6)
  1. SERTRALINE HCL [Suspect]
     Indication: OBSESSIVE-COMPULSIVE DISORDER
     Dosage: 200 MG, DAILY
  2. SERTRALINE HCL [Suspect]
     Dosage: 400 MG, DAILY
  3. SERTRALINE HCL [Suspect]
     Dosage: 200 MG, DAILY
  4. RISPERIDONE [Suspect]
     Indication: OBSESSIVE-COMPULSIVE DISORDER
     Dosage: 2 MG, DAILY
  5. CLOMIPRAMINE [Suspect]
     Indication: OBSESSIVE-COMPULSIVE DISORDER
     Dosage: 225 MG, DAILY
  6. LITHIUM [Suspect]
     Indication: OBSESSIVE-COMPULSIVE DISORDER
     Dosage: 800 MG, DAILY

REACTIONS (12)
  - Serotonin syndrome [Recovered/Resolved]
  - Hallucination, auditory [Recovered/Resolved]
  - Drug effect incomplete [Recovered/Resolved]
  - Medication error [Recovered/Resolved]
  - Self-medication [Recovered/Resolved]
  - Tremor [Recovered/Resolved]
  - Myoclonus [Recovered/Resolved]
  - Ataxia [Recovered/Resolved]
  - Gait disturbance [Recovered/Resolved]
  - Hypertension [Recovered/Resolved]
  - Muscle twitching [Recovered/Resolved]
  - Hyperhidrosis [Recovered/Resolved]
